FAERS Safety Report 4343871-X (Version None)
Quarter: 2004Q2

REPORT INFORMATION
  Report Type: 
  Country: None (occurrence: None)
  Receive Date: 20040421
  Receipt Date: 20040421
  Transmission Date: 20050107
  Serious: Yes (Hospitalization)
  Sender: FDA-Public Use
  Company Number: None

PATIENT

DRUGS (4)
  1. FUROSEMIDE [Suspect]
     Dosage: 40 MG BID
  2. LISINOPRIL [Suspect]
     Dosage: 5 MG QD
  3. SPIRONOLACTONE [Suspect]
     Dosage: 25MG PO QD
     Route: 048
  4. CARVEDILOL [Suspect]
     Dosage: 6.25 MG BID

REACTIONS (3)
  - BLOOD PRESSURE ORTHOSTATIC DECREASED [None]
  - FALL [None]
  - MEDICATION ERROR [None]
